APPROVED DRUG PRODUCT: ONAPGO
Active Ingredient: APOMORPHINE HYDROCHLORIDE
Strength: 98MG/20ML (4.9MG/ML)
Dosage Form/Route: SOLUTION;SUBCUTANEOUS
Application: N214056 | Product #001
Applicant: MDD US OPERATIONS LLC A SUB OF SUPERNUS PHARMACEUTICALS INC
Approved: Feb 3, 2025 | RLD: Yes | RS: Yes | Type: RX

EXCLUSIVITY:
Code: NP | Date: Feb 3, 2028